FAERS Safety Report 9468723 (Version 2)
Quarter: 2014Q1

REPORT INFORMATION
  Report Type: Spontaneous
  Country: US (occurrence: US)
  Receive Date: 20130821
  Receipt Date: 20140102
  Transmission Date: 20141002
  Serious: Yes (Hospitalization, Other)
  Sender: FDA-Public Use
  Company Number: US-BAYER-2013-099967

PATIENT
  Age: 28 Year
  Sex: Female

DRUGS (4)
  1. YASMIN [Suspect]
     Indication: ACNE
  2. YASMIN [Suspect]
     Indication: POLYCYSTIC OVARIES
  3. YAZ [Suspect]
  4. OCELLA [Suspect]

REACTIONS (8)
  - Gallbladder injury [None]
  - Deep vein thrombosis [None]
  - Pelvic venous thrombosis [Recovered/Resolved]
  - Thrombophlebitis superficial [None]
  - Cholelithiasis [None]
  - Injury [None]
  - Pain [None]
  - Pain [None]
